FAERS Safety Report 10362475 (Version 2)
Quarter: 2014Q3

REPORT INFORMATION
  Report Type: Spontaneous
  Country: US (occurrence: US)
  Receive Date: 20140805
  Receipt Date: 20140805
  Transmission Date: 20150326
  Serious: Yes (Hospitalization, Disabling, Other)
  Sender: FDA-Public Use
  Company Number: US-009507513-2010SP004577

PATIENT
  Sex: Female
  Weight: 96.16 kg

DRUGS (4)
  1. NUVARING [Suspect]
     Active Substance: ETHINYL ESTRADIOL\ETONOGESTREL
     Indication: PREMENSTRUAL SYNDROME
  2. NUVARING [Suspect]
     Active Substance: ETHINYL ESTRADIOL\ETONOGESTREL
     Indication: CONTRACEPTION
     Route: 067
     Dates: start: 20070524, end: 20070805
  3. NUVARING [Suspect]
     Active Substance: ETHINYL ESTRADIOL\ETONOGESTREL
     Indication: HORMONE REPLACEMENT THERAPY
  4. EXCEDRIN [Concomitant]
     Active Substance: ACETAMINOPHEN\ASPIRIN\CAFFEINE
     Indication: MIGRAINE
     Dosage: TAKEN FROM CHILDHOOD TO PRESENT

REACTIONS (7)
  - Depression [Unknown]
  - Breast cyst [Unknown]
  - Pulmonary embolism [Unknown]
  - Deep vein thrombosis [Unknown]
  - Cervical polyp [Unknown]
  - Impaired work ability [Unknown]
  - Therapeutic product ineffective for unapproved indication [Unknown]

NARRATIVE: CASE EVENT DATE: 2007
